FAERS Safety Report 26011139 (Version 2)
Quarter: 2025Q4

REPORT INFORMATION
  Report Type: Spontaneous
  Country: CH (occurrence: CH)
  Receive Date: 20251107
  Receipt Date: 20251208
  Transmission Date: 20260118
  Serious: No
  Sender: TAIHO ONCOLOGY INC
  Company Number: CH-TAIHOP-2025-011930

PATIENT
  Age: 71 Year
  Sex: Female

DRUGS (1)
  1. LYTGOBI [Suspect]
     Active Substance: FUTIBATINIB
     Indication: Cholangiocarcinoma
     Dosage: FORM STRENGTH UNKNOWN.
     Route: 048
     Dates: start: 202505, end: 202507

REACTIONS (1)
  - Prescribed underdose [Unknown]
